FAERS Safety Report 5613747-6 (Version None)
Quarter: 2008Q1

REPORT INFORMATION
  Report Type: 
  Country: None (occurrence: None)
  Receive Date: 20080130
  Receipt Date: 20080114
  Transmission Date: 20080703
  Serious: Yes (Death)
  Sender: FDA-Public Use
  Company Number: 2008S1000069

PATIENT
  Age: 52 Year
  Sex: Female

DRUGS (11)
  1. ROXICODONE [Suspect]
     Dosage: ; PO
     Route: 048
     Dates: end: 20060101
  2. FENTANYL [Suspect]
     Dosage: ; PO
     Route: 048
     Dates: end: 20060101
  3. DOXEPIN HCL [Suspect]
     Dosage: ; PO
     Route: 048
     Dates: end: 20060101
  4. BUPROPION HCL [Suspect]
     Dosage: ; PO
     Route: 048
     Dates: end: 20060101
  5. FLUOXETINE [Suspect]
     Dosage: ; PO
     Route: 048
     Dates: end: 20060101
  6. AMOXICILLIN [Suspect]
     Dosage: ; PO
     Route: 048
     Dates: end: 20060101
  7. PREGABALIN [Suspect]
     Dosage: ; PO
     Route: 048
     Dates: end: 20060101
  8. METHOCARBAMOL [Suspect]
     Dosage: ; PO
     Route: 048
     Dates: end: 20060101
  9. ATORVASTATIN CALCIUM [Suspect]
     Dosage: ; PO
     Route: 048
     Dates: end: 20060101
  10. TIZANIDINE HCL [Suspect]
     Dosage: ; PO
     Route: 048
     Dates: end: 20060101
  11. IBUPROFEN [Suspect]
     Dosage: ; PO
     Route: 048
     Dates: end: 20060101

REACTIONS (2)
  - CARDIAC ARREST [None]
  - RESPIRATORY ARREST [None]
